FAERS Safety Report 9631368 (Version 1)
Quarter: 2013Q4

REPORT INFORMATION
  Report Type: Spontaneous
  Country: US (occurrence: US)
  Receive Date: 20131018
  Receipt Date: 20131018
  Transmission Date: 20140711
  Serious: No
  Sender: FDA-Public Use
  Company Number: US-TEVA-438718USA

PATIENT
  Age: 39 Year
  Sex: Female
  Weight: 54.93 kg

DRUGS (2)
  1. PARAGARD 380A [Suspect]
     Indication: CONTRACEPTION
     Route: 015
     Dates: start: 20130930, end: 20131015
  2. BIEST [Concomitant]
     Indication: MENOPAUSAL SYMPTOMS

REACTIONS (1)
  - Abdominal pain [Recovered/Resolved]
